APPROVED DRUG PRODUCT: LACTULOSE
Active Ingredient: LACTULOSE
Strength: 10GM/15ML
Dosage Form/Route: SOLUTION;ORAL
Application: A090503 | Product #001 | TE Code: AA
Applicant: FRESENIUS KABI AUSTRIA GMBH
Approved: Jan 25, 2012 | RLD: No | RS: No | Type: RX